FAERS Safety Report 17136929 (Version 1)
Quarter: 2019Q4

REPORT INFORMATION
  Report Type: Spontaneous
  Country: VN (occurrence: VN)
  Receive Date: 20191210
  Receipt Date: 20191210
  Transmission Date: 20200122
  Serious: Yes (Death, Other)
  Sender: FDA-Public Use
  Company Number: VN-BAYER-2019-216054

PATIENT
  Age: 52 Year
  Sex: Female

DRUGS (1)
  1. NEXAVAR [Suspect]
     Active Substance: SORAFENIB
     Indication: HEPATOCELLULAR CARCINOMA
     Dosage: 200 MG, BID (2X200)
     Route: 048
     Dates: start: 201707, end: 201712

REACTIONS (2)
  - Off label use [None]
  - Hepatocellular carcinoma [None]

NARRATIVE: CASE EVENT DATE: 20171215
